FAERS Safety Report 24310066 (Version 1)
Quarter: 2024Q3

REPORT INFORMATION
  Report Type: Spontaneous
  Country: JP (occurrence: JP)
  Receive Date: 20240912
  Receipt Date: 20240912
  Transmission Date: 20241016
  Serious: Yes (Life-Threatening)
  Sender: Haleon PLC
  Company Number: JP-HALEON-2196218

PATIENT
  Age: 13 Year
  Sex: Female

DRUGS (10)
  1. ACETAMINOPHEN [Suspect]
     Active Substance: ACETAMINOPHEN
     Indication: Therapeutic hypothermia
     Dosage: TIME INTERVAL: AS NECESSARY
  2. VANCOMYCIN [Concomitant]
     Active Substance: VANCOMYCIN
     Indication: Wound infection
  3. IBUPROFEN [Suspect]
     Active Substance: IBUPROFEN
     Indication: Therapeutic hypothermia
     Dosage: TIME INTERVAL: AS NECESSARY
  4. MIDAZOLAM [Concomitant]
     Active Substance: MIDAZOLAM
  5. FENTANYL [Concomitant]
     Active Substance: FENTANYL\FENTANYL CITRATE
  6. ROCURONIUM [Concomitant]
     Active Substance: ROCURONIUM BROMIDE
  7. METHIMAZOLE [Concomitant]
     Active Substance: METHIMAZOLE
     Indication: Thyrotoxic crisis
  8. POTASSIUM IODIDE [Concomitant]
     Active Substance: POTASSIUM IODIDE
     Indication: Thyrotoxic crisis
  9. HYDROCORTISONE [Concomitant]
     Active Substance: HYDROCORTISONE\HYDROCORTISONE ACETATE
     Indication: Thyrotoxic crisis
  10. LANDIOLOL [Concomitant]
     Active Substance: LANDIOLOL
     Indication: Thyrotoxic crisis
     Dosage: STARTING DOSE: 3MCG/KG/MIN

REACTIONS (1)
  - Drug ineffective [Unknown]
